FAERS Safety Report 7760379-X (Version None)
Quarter: 2011Q3

REPORT INFORMATION
  Report Type: 
  Country: None (occurrence: None)
  Receive Date: 20110919
  Receipt Date: 20110912
  Transmission Date: 20111222
  Serious: Yes (Other)
  Sender: FDA-Public Use
  Company Number: PHEH2011US04024

PATIENT
  Sex: Male

DRUGS (5)
  1. FOCALIN XR [Suspect]
     Dosage: 5 MG/ 1 OR 2 XDAY
  2. FOCALIN XR [Suspect]
     Dosage: 10 MG, 1XDAY
  3. FOCALIN XR [Suspect]
     Dosage: 15 MG, 1XDAY
  4. FOCALIN XR [Suspect]
     Dosage: 20 MG, 1XDAY
  5. STRATTERA [Suspect]
     Dosage: UNK UKN, 1XDAY

REACTIONS (3)
  - EXERCISE ELECTROCARDIOGRAM ABNORMAL [None]
  - CRYING [None]
  - DEPRESSED MOOD [None]
